FAERS Safety Report 19674819 (Version 1)
Quarter: 2021Q3

REPORT INFORMATION
  Report Type: Spontaneous
  Country: JP (occurrence: JP)
  Receive Date: 20210809
  Receipt Date: 20210809
  Transmission Date: 20211014
  Serious: Yes (Other)
  Sender: FDA-Public Use
  Company Number: JP-009507513-2108JPN000438J

PATIENT
  Age: 80 Year
  Sex: Male

DRUGS (1)
  1. BELSOMRA [Suspect]
     Active Substance: SUVOREXANT
     Indication: INSOMNIA
     Dosage: UNK
     Route: 048

REACTIONS (6)
  - Thirst [Unknown]
  - Therapeutic response decreased [Unknown]
  - Mental impairment [Unknown]
  - Visual acuity reduced [Unknown]
  - Dizziness [Not Recovered/Not Resolved]
  - Abdominal discomfort [Unknown]
